FAERS Safety Report 6976687-6 (Version None)
Quarter: 2010Q3

REPORT INFORMATION
  Report Type: 
  Country: None (occurrence: None)
  Receive Date: 20100910
  Receipt Date: 20090504
  Transmission Date: 20110219
  Serious: No
  Sender: FDA-Public Use
  Company Number: US-WYE-H09213609

PATIENT
  Sex: Female

DRUGS (2)
  1. PRISTIQ [Suspect]
     Indication: URTICARIA
     Route: 048
     Dates: start: 20090428
  2. XANAX [Concomitant]
     Dosage: ^TAPERING OFF DOSE^

REACTIONS (2)
  - PALLOR [None]
  - PRESYNCOPE [None]
